FAERS Safety Report 5577499-0 (Version None)
Quarter: 2007Q4

REPORT INFORMATION
  Report Type: 
  Country: None (occurrence: None)
  Receive Date: 20071228
  Receipt Date: 20071219
  Transmission Date: 20080405
  Serious: Yes (Other)
  Sender: FDA-Public Use
  Company Number: US-PFIZER INC-2007106835

PATIENT
  Sex: Male
  Weight: 99.8 kg

DRUGS (4)
  1. VFEND [Suspect]
     Indication: FUNGAL INFECTION
  2. VFEND [Suspect]
     Indication: OSTEOMYELITIS
  3. AMBISOME [Suspect]
     Indication: FUNGAL INFECTION
     Dates: start: 20070901, end: 20071001
  4. AMBISOME [Suspect]
     Indication: OSTEOMYELITIS

REACTIONS (4)
  - BLOOD CREATININE INCREASED [None]
  - DRUG LEVEL BELOW THERAPEUTIC [None]
  - LIVER FUNCTION TEST ABNORMAL [None]
  - RENAL DISORDER [None]
